FAERS Safety Report 8377801-0 (Version None)
Quarter: 2012Q2

REPORT INFORMATION
  Report Type: 
  Country: None (occurrence: None)
  Receive Date: 20120522
  Receipt Date: 20120515
  Transmission Date: 20120825
  Serious: Yes (Hospitalization, Other)
  Sender: FDA-Public Use
  Company Number: US-CELGENEUS-163-21880-12042589

PATIENT
  Sex: Female
  Weight: 67.646 kg

DRUGS (12)
  1. ALLOPURINOL [Concomitant]
     Route: 065
  2. HCTZ/TRIAMT [Concomitant]
     Route: 065
  3. PERCOCET [Concomitant]
     Route: 065
  4. DIOVAN [Concomitant]
     Route: 065
  5. AMLODIPINE BESYLATE [Concomitant]
     Route: 065
  6. METFORMIN HCL [Concomitant]
     Route: 065
  7. KLOR-CON [Concomitant]
     Route: 065
  8. LASIX [Concomitant]
     Route: 065
  9. TRAMADOL HYDROCHLORIDE [Concomitant]
     Route: 065
  10. TYLENOL [Concomitant]
     Route: 065
  11. REVLIMID [Suspect]
     Indication: MULTIPLE MYELOMA
     Dosage: 10 MILLIGRAM
     Route: 048
     Dates: start: 20090423
  12. MAGNESIUM OXIDE [Concomitant]
     Route: 065

REACTIONS (6)
  - PANCYTOPENIA [None]
  - OEDEMA PERIPHERAL [None]
  - NASOPHARYNGITIS [None]
  - PATELLA FRACTURE [None]
  - CLOSTRIDIUM DIFFICILE COLITIS [None]
  - RENAL FAILURE ACUTE [None]
